FAERS Safety Report 5857408-7 (Version None)
Quarter: 2008Q3

REPORT INFORMATION
  Report Type: 
  Country: None (occurrence: None)
  Receive Date: 20080825
  Receipt Date: 20080825
  Transmission Date: 20090109
  Serious: Yes (Other)
  Sender: FDA-Public Use
  Company Number: None

PATIENT
  Age: 83 Year
  Sex: Male
  Weight: 58.514 kg

DRUGS (2)
  1. REMERON SOLTAB [Suspect]
     Indication: DEPRESSION
     Dosage: 30MG DAILY AT HS PO
     Route: 048
     Dates: start: 20080813, end: 20080819
  2. REMERON SOLTAB [Suspect]
     Indication: INCREASED APPETITE
     Dosage: 30MG DAILY AT HS PO
     Route: 048
     Dates: start: 20080813, end: 20080819

REACTIONS (4)
  - ANXIETY [None]
  - DELUSION [None]
  - FALL [None]
  - INSOMNIA [None]
